FAERS Safety Report 4434105-6 (Version None)
Quarter: 2004Q3

REPORT INFORMATION
  Report Type: 
  Country: None (occurrence: None)
  Receive Date: 20040825
  Receipt Date: 20040811
  Transmission Date: 20050211
  Serious: Yes (Other)
  Sender: FDA-Public Use
  Company Number: USA021224615

PATIENT
  Age: 63 Year
  Sex: Female
  Weight: 59 kg

DRUGS (2)
  1. HUMALOG [Suspect]
     Indication: DIABETES MELLITUS
     Dates: start: 19930101
  2. LANTUS [Concomitant]

REACTIONS (16)
  - ARTHRITIS [None]
  - ARTHROPATHY [None]
  - BLOOD GLUCOSE DECREASED [None]
  - BLOOD GLUCOSE INCREASED [None]
  - DIABETES MELLITUS INADEQUATE CONTROL [None]
  - EYE LASER SURGERY [None]
  - FOOT FRACTURE [None]
  - JOINT INJURY [None]
  - MACULAR OEDEMA [None]
  - NEUROPATHIC ARTHROPATHY [None]
  - NEUROPATHY PERIPHERAL [None]
  - PHARMACEUTICAL PRODUCT COMPLAINT [None]
  - RASH PRURITIC [None]
  - REACTION TO FOOD ADDITIVE [None]
  - THYROID ATROPHY [None]
  - TRIGGER FINGER [None]
